FAERS Safety Report 7493001-0 (Version None)
Quarter: 2011Q2

REPORT INFORMATION
  Report Type: 
  Country: None (occurrence: None)
  Receive Date: 20110519
  Receipt Date: 20110519
  Transmission Date: 20111010
  Serious: Yes (Hospitalization)
  Sender: FDA-Public Use
  Company Number: None

PATIENT
  Age: 84 Year
  Sex: Male
  Weight: 89 kg

DRUGS (1)
  1. DABIGATRAN [Suspect]
     Indication: ATRIAL FIBRILLATION
     Dosage: 75 MG BID PO
     Route: 048
     Dates: start: 20110408, end: 20110516

REACTIONS (4)
  - PALPITATIONS [None]
  - MUSCULAR WEAKNESS [None]
  - RENAL FAILURE [None]
  - GASTRIC HAEMORRHAGE [None]
